FAERS Safety Report 11693269 (Version 2)
Quarter: 2015Q4

REPORT INFORMATION
  Report Type: Spontaneous
  Country: JP (occurrence: JP)
  Receive Date: 20151103
  Receipt Date: 20151123
  Transmission Date: 20160304
  Serious: Yes (Hospitalization)
  Sender: FDA-Public Use
  Company Number: JP-PFIZER INC-2015348267

PATIENT
  Age: 66 Year
  Sex: Male
  Weight: 83 kg

DRUGS (12)
  1. DERMOVATE [Concomitant]
     Active Substance: CLOBETASOL
     Dosage: UNK
  2. SUTENT [Suspect]
     Active Substance: SUNITINIB MALATE
     Indication: RENAL CANCER METASTATIC
     Dosage: 37.5 MG, CYCLIC (DAILY ON A 2-WEEKS-ON AND 1-WEEK-OFF)
     Route: 048
     Dates: start: 20140822, end: 20151005
  3. TRAMCET [Concomitant]
     Active Substance: ACETAMINOPHEN\TRAMADOL
     Dosage: UNK
     Route: 048
  4. NESINA [Concomitant]
     Active Substance: ALOGLIPTIN BENZOATE
     Dosage: UNK
     Route: 048
  5. ZINC OXIDE. [Concomitant]
     Active Substance: ZINC OXIDE
     Dosage: UNK
  6. LUPRAC [Concomitant]
     Active Substance: TORSEMIDE
     Dosage: UNK
     Route: 048
  7. ZEFNART [Concomitant]
     Dosage: UNK
  8. KAYTWO N [Concomitant]
     Active Substance: MENATETRENONE
     Dosage: UNK
     Route: 042
  9. ARTIST [Concomitant]
     Active Substance: CARVEDILOL
     Dosage: UNK
     Route: 048
  10. TICLOPIDINE [Concomitant]
     Active Substance: TICLOPIDINE
     Dosage: UNK
     Route: 048
  11. WARFARIN [Concomitant]
     Active Substance: WARFARIN
     Dosage: UNK
     Route: 048
  12. ATORVASTATIN CALCIUM. [Suspect]
     Active Substance: ATORVASTATIN CALCIUM
     Indication: DYSLIPIDAEMIA
     Dosage: 20 MG, 1X/DAY
     Route: 048
     Dates: start: 20110104

REACTIONS (6)
  - Anaemia [Unknown]
  - Blood creatine phosphokinase increased [Unknown]
  - Aspartate aminotransferase increased [Unknown]
  - Blood lactate dehydrogenase increased [Unknown]
  - Rhabdomyolysis [Recovered/Resolved]
  - Blood creatinine increased [Unknown]

NARRATIVE: CASE EVENT DATE: 20151005
